FAERS Safety Report 9103804 (Version 1)
Quarter: 2013Q1

REPORT INFORMATION
  Report Type: Spontaneous
  Country: GB (occurrence: GB)
  Receive Date: 20130219
  Receipt Date: 20130219
  Transmission Date: 20140127
  Serious: Yes (Other)
  Sender: FDA-Public Use
  Company Number: GB-NICOBRDEVP-2013-02528

PATIENT
  Sex: Male

DRUGS (1)
  1. CITALOPRAM HYDROBROMIDE [Suspect]
     Indication: PRODUCT USED FOR UNKNOWN INDICATION
     Dosage: NOT STATED
     Route: 065

REACTIONS (5)
  - Anxiety [Unknown]
  - Fatigue [Unknown]
  - Myalgia [Unknown]
  - Irritability [Unknown]
  - Food craving [Unknown]
